FAERS Safety Report 8540153-7 (Version None)
Quarter: 2012Q3

REPORT INFORMATION
  Report Type: 
  Country: None (occurrence: None)
  Receive Date: 20120726
  Receipt Date: 20120723
  Transmission Date: 20120928
  Serious: Yes (Other)
  Sender: FDA-Public Use
  Company Number: CA-ROCHE-1092568

PATIENT
  Sex: Female
  Weight: 49.032 kg

DRUGS (4)
  1. CRESTOR [Concomitant]
  2. TRAZODONE HYDROCHLORIDE [Concomitant]
  3. EFFEXOR XR [Concomitant]
  4. XELODA [Suspect]
     Indication: BREAST CANCER
     Route: 048
     Dates: start: 20061001, end: 20070301

REACTIONS (1)
  - BREAST CANCER RECURRENT [None]
